FAERS Safety Report 9073043 (Version 1)
Quarter: 2013Q1

REPORT INFORMATION
  Report Type: Report from Study
  Country: US (occurrence: US)
  Receive Date: 20130129
  Receipt Date: 20130129
  Transmission Date: 20140127
  Serious: No
  Sender: FDA-Public Use
  Company Number: US-ABBOTT-12P-163-0918923-00

PATIENT
  Age: 48 None
  Sex: Male

DRUGS (5)
  1. HUMIRA 40 MG/0.8 ML PEN [Suspect]
     Indication: RHEUMATOID ARTHRITIS
     Dates: start: 201110, end: 20120306
  2. HUMIRA 40 MG/0.8 ML PEN [Suspect]
     Route: 058
     Dates: start: 20110718
  3. VICODAN [Concomitant]
     Indication: PAIN
     Dosage: 2 OR 3 TIMES PER WEEK DEPENDING ON PAIN
  4. NAPROXEN [Concomitant]
     Indication: PAIN
     Dosage: 2 OR 3 TIMES PER WEEK DEPENDING ON PAIN
  5. UNKNOWN MEDICATION [Concomitant]
     Indication: PRODUCT USED FOR UNKNOWN INDICATION

REACTIONS (4)
  - Pyrexia [Recovering/Resolving]
  - Nasopharyngitis [Recovered/Resolved]
  - Headache [Recovering/Resolving]
  - Hypertension [Unknown]
